FAERS Safety Report 21322659 (Version 1)
Quarter: 2022Q3

REPORT INFORMATION
  Report Type: Report from Study
  Country: CN (occurrence: None)
  Receive Date: 20220912
  Receipt Date: 20220912
  Transmission Date: 20221027
  Serious: Yes (Hospitalization)
  Sender: FDA-Public Use
  Company Number: CN-ROCHE-3173726

PATIENT
  Age: 59 Year
  Sex: Female
  Weight: 56 kg

DRUGS (5)
  1. PRALSETINIB [Suspect]
     Active Substance: PRALSETINIB
     Indication: Non-small cell lung cancer
     Dosage: THE LAST DOSE WAS ADMINISTERED PRIOR TO AE ON 27/AUG/2022
     Route: 048
     Dates: start: 20200630, end: 20220828
  2. PRALSETINIB [Suspect]
     Active Substance: PRALSETINIB
     Route: 048
     Dates: start: 20200630
  3. PRALSETINIB [Suspect]
     Active Substance: PRALSETINIB
     Route: 048
     Dates: start: 20200811
  4. PRALSETINIB [Suspect]
     Active Substance: PRALSETINIB
     Route: 048
     Dates: start: 20210118
  5. PRALSETINIB [Suspect]
     Active Substance: PRALSETINIB
     Route: 048
     Dates: start: 20210518

REACTIONS (1)
  - Uterine mass [Recovered/Resolved]

NARRATIVE: CASE EVENT DATE: 20220829
